FAERS Safety Report 13324328 (Version 1)
Quarter: 2017Q1

REPORT INFORMATION
  Report Type: Spontaneous
  Country: CH (occurrence: CH)
  Receive Date: 20170310
  Receipt Date: 20170310
  Transmission Date: 20170428
  Serious: Yes (Hospitalization, Other)
  Sender: FDA-Public Use
  Company Number: CH-PFIZER INC-2017080456

PATIENT
  Age: 80 Year
  Sex: Female

DRUGS (16)
  1. NEXIUM [Concomitant]
     Active Substance: ESOMEPRAZOLE MAGNESIUM
     Dosage: 40 MG, 3X/DAY
     Route: 048
  2. ARCOXIA [Concomitant]
     Active Substance: ETORICOXIB
     Dosage: 30 MG, 1X/DAY (MID-DAY)
     Route: 048
  3. TARGIN [Concomitant]
     Active Substance: NALOXONE HYDROCHLORIDE\OXYCODONE HYDROCHLORIDE
     Dosage: 20MG 09:00
  4. TARGIN [Concomitant]
     Active Substance: NALOXONE HYDROCHLORIDE\OXYCODONE HYDROCHLORIDE
     Dosage: 40 MG 21:00
  5. LYRICA [Suspect]
     Active Substance: PREGABALIN
     Dosage: 200 MG, 2X/DAY
     Dates: start: 20170202
  6. LYRICA [Suspect]
     Active Substance: PREGABALIN
     Dosage: 750 MG, DAILY (300 MG IN THE MORNING + 450 MG IN THE EVENING)
     Route: 048
  7. NEUPRO [Concomitant]
     Active Substance: ROTIGOTINE
     Dosage: 8 MG, 1X/DAY
     Route: 048
  8. FORSTEO [Concomitant]
     Active Substance: TERIPARATIDE
     Dosage: 20 UG, 1X/DAY (IN THE MORNING)
     Route: 048
  9. BETASERC /00141801/ [Concomitant]
     Active Substance: BETAHISTINE
     Dosage: 1 DF, 2X/DAY ((1 TAB MORNING AND EVENING)
     Route: 048
  10. DUODOPA [Concomitant]
     Active Substance: CARBIDOPA\LEVODOPA
     Dosage: UNK
     Route: 048
  11. DUODOPA [Concomitant]
     Active Substance: CARBIDOPA\LEVODOPA
     Dosage: 25/100 1X DAILY AT 21:00 + DUODOPA CASSETTE - 40MG + 20MG FROM 05:00 TO 21:00
  12. ACIDE FOLIQUE [Concomitant]
     Active Substance: FOLIC ACID
     Dosage: 5 MG, 1X/DAY
     Route: 048
  13. GUTRON [Concomitant]
     Active Substance: MIDODRINE
     Dosage: 5 MG, 2X/DAY (5MG 09:00, 5MG 17:00)
     Route: 048
  14. TARGIN [Concomitant]
     Active Substance: NALOXONE HYDROCHLORIDE\OXYCODONE HYDROCHLORIDE
     Dosage: 60 MG, 1X/DAY
     Route: 048
  15. VESICARE [Concomitant]
     Active Substance: SOLIFENACIN SUCCINATE
     Dosage: 1 DF, 2X/DAY ((1 TAB MORNING AND EVENING)
     Route: 048
  16. VITAMIN B12 [Concomitant]
     Active Substance: CYANOCOBALAMIN
     Dosage: 1 MG, 1X/DAY (1MG TAB IN THE MORNING)
     Route: 048

REACTIONS (10)
  - Product use issue [Recovered/Resolved]
  - Volvulus [Unknown]
  - Dyskinesia [Unknown]
  - Corynebacterium infection [Unknown]
  - Clostridium colitis [Unknown]
  - Somnolence [Recovering/Resolving]
  - Condition aggravated [Recovering/Resolving]
  - Confusional state [Recovered/Resolved]
  - Altered state of consciousness [Unknown]
  - Condition aggravated [Unknown]

NARRATIVE: CASE EVENT DATE: 20170127
